FAERS Safety Report 19496054 (Version 1)
Quarter: 2021Q3

REPORT INFORMATION
  Report Type: Spontaneous
  Country: DE (occurrence: DE)
  Receive Date: 20210706
  Receipt Date: 20210706
  Transmission Date: 20211014
  Serious: Yes (Hospitalization)
  Sender: FDA-Public Use
  Company Number: DE-ORGANON-O2107DEU000112

PATIENT
  Age: 83 Year
  Sex: Female

DRUGS (13)
  1. LITHIUM CARBONATE. [Suspect]
     Active Substance: LITHIUM CARBONATE
     Dosage: UNK (0.5?0?1?0, RETARD?TABLET), MEDICATION ERRORS
     Route: 048
  2. NYSTATIN;ZINC OXIDE [Concomitant]
     Dosage: UNK (IF NECESSARY, OINTMENT)
     Route: 003
  3. MIRTAZAPINE. [Suspect]
     Active Substance: MIRTAZAPINE
     Dosage: UNK (30 MG, 0?0?1?0, TABLET)
     Route: 048
  4. BENSERAZIDE;LEVODOPA [Suspect]
     Active Substance: BENSERAZIDE\LEVODOPA
     Dosage: UNK (100|25 MG, 1?1?1?0, TABLET); MEDICATION ERRORS
     Route: 048
  5. CITALOPRAM [Suspect]
     Active Substance: CITALOPRAM HYDROBROMIDE
     Dosage: UNK (30 MG, 1?0?0?0, TABLET)
     Route: 048
  6. SIMVASTATIN. [Concomitant]
     Active Substance: SIMVASTATIN
     Dosage: UNK (10 MG, 0?0?1?0, TABLET)
     Route: 048
  7. FUROSEMIDE. [Concomitant]
     Active Substance: FUROSEMIDE
     Dosage: UNK (AS NEEDED, TABLET)
     Route: 048
  8. CLARITHROMYCIN. [Suspect]
     Active Substance: CLARITHROMYCIN
     Dosage: 250 MG, IN THE MORNING AND EVENING UNTIL APRIL 7TH, TABLETS, MEDICATION ERRORS
     Route: 048
  9. LEVOTHYROXINE SODIUM. [Concomitant]
     Active Substance: LEVOTHYROXINE SODIUM
     Dosage: UNK (75 MICROGRAM, 1?0?0?0, TABLET)
     Route: 048
  10. MELPERON [Suspect]
     Active Substance: MELPERONE
     Dosage: UNK (25 MG, 0?0?1?0, TABLET)
     Route: 048
  11. ZOLPIDEM [Concomitant]
     Active Substance: ZOLPIDEM TARTRATE
     Dosage: UNK (10 MG, AS NEEDED, TABLET)
     Route: 048
  12. PROPIVERINE [Concomitant]
     Active Substance: PROPIVERINE
     Dosage: UNK (15 MG, 1?0?1?0, TABLET)
     Route: 048
  13. PARACETAMOL [Concomitant]
     Active Substance: ACETAMINOPHEN
     Dosage: 500 MG, 4 TIMES A DAY UNTIL APRIL 7TH, TABLETS
     Route: 048

REACTIONS (4)
  - Fall [Unknown]
  - Asthenia [Unknown]
  - Dizziness [Unknown]
  - Medication error [Unknown]
